FAERS Safety Report 7707894-2 (Version None)
Quarter: 2011Q3

REPORT INFORMATION
  Report Type: 
  Country: None (occurrence: None)
  Receive Date: 20110824
  Receipt Date: 20110818
  Transmission Date: 20111222
  Serious: Yes (Other)
  Sender: FDA-Public Use
  Company Number: CA-MERCK-1108USA02191

PATIENT
  Sex: Male

DRUGS (8)
  1. ZETIA [Suspect]
     Route: 048
  2. ASPIRIN [Suspect]
     Route: 048
  3. ATORVASTATIN CALCIUM [Suspect]
     Route: 048
  4. PLAVIX [Suspect]
     Route: 048
  5. PANTOPRAZOLE [Suspect]
     Route: 048
  6. RAMIPRIL [Suspect]
     Route: 048
  7. NITROGLYCERIN [Suspect]
     Route: 060
  8. METOPROLOL [Suspect]
     Route: 048

REACTIONS (3)
  - NAUSEA [None]
  - MALAISE [None]
  - ABDOMINAL PAIN [None]
